FAERS Safety Report 8455856-2 (Version None)
Quarter: 2012Q2

REPORT INFORMATION
  Report Type: 
  Country: None (occurrence: None)
  Receive Date: 20120621
  Receipt Date: 20120606
  Transmission Date: 20120825
  Serious: Yes (Hospitalization)
  Sender: FDA-Public Use
  Company Number: US-JNJFOC-20120506299

PATIENT
  Age: 64 Year
  Sex: Female
  Weight: 108 kg

DRUGS (14)
  1. IBUPROFEN [Suspect]
     Route: 048
     Dates: start: 20120417
  2. NEXIUM [Concomitant]
     Route: 048
     Dates: start: 20090611
  3. IBUPROFEN [Suspect]
     Indication: OSTEOARTHRITIS
     Route: 048
     Dates: start: 20120417
  4. NEXIUM [Concomitant]
     Indication: PROPHYLAXIS
     Route: 048
     Dates: start: 20120317
  5. ASPIRIN [Concomitant]
     Indication: CARDIOVASCULAR EVENT PROPHYLAXIS
     Route: 048
     Dates: start: 20040101
  6. ADVAIR DISKUS 100/50 [Concomitant]
     Indication: ASTHMA
     Dosage: 1 PUFF 2 TIMES PER DAY
     Route: 055
     Dates: start: 20020101
  7. RAMIPRIL [Concomitant]
     Indication: HYPERTENSION
     Route: 048
     Dates: start: 20030101
  8. FISH OIL [Concomitant]
     Indication: MEDICAL DIET
     Route: 048
     Dates: start: 20071201
  9. LYRICA [Concomitant]
     Indication: DIABETIC NEUROPATHY
     Route: 048
     Dates: start: 20070114
  10. FLUOXETINE [Concomitant]
     Indication: GENERALISED ANXIETY DISORDER
     Route: 048
     Dates: start: 19960101
  11. LASIX [Concomitant]
     Indication: CARDIAC FAILURE CONGESTIVE
     Route: 048
     Dates: start: 20040101
  12. FOSAMAX [Concomitant]
     Indication: OSTEOPENIA
     Route: 048
     Dates: start: 20060919
  13. IBUPROFEN [Suspect]
     Indication: RHEUMATOID ARTHRITIS
     Route: 048
     Dates: start: 20090611, end: 20120402
  14. IBUPROFEN [Suspect]
     Route: 048
     Dates: start: 20090611, end: 20120402

REACTIONS (2)
  - ATRIAL FIBRILLATION [None]
  - GASTRIC PERFORATION [None]
